FAERS Safety Report 7903319-2 (Version None)
Quarter: 2011Q4

REPORT INFORMATION
  Report Type: 
  Country: None (occurrence: None)
  Receive Date: 20111109
  Receipt Date: 20111103
  Transmission Date: 20120403
  Serious: No
  Sender: FDA-Public Use
  Company Number: US-PFIZER INC-2011267111

PATIENT
  Sex: Male
  Weight: 59.864 kg

DRUGS (7)
  1. FLECTOR [Suspect]
     Indication: PAIN
     Dosage: UNK, 1X/DAY
     Dates: start: 20111024
  2. FISH OIL [Concomitant]
     Dosage: UNK
  3. ACETYLSALICYLIC ACID [Concomitant]
     Dosage: 81 MG, UNK
  4. ATENOLOL [Concomitant]
     Indication: HYPERTENSION
     Dosage: UNK, 1X/DAY
  5. SIMVASTATIN [Concomitant]
     Indication: BLOOD CHOLESTEROL INCREASED
     Dosage: 80 MG, 1X/DAY
  6. CENTRUM SILVER [Concomitant]
     Indication: VITAMIN SUPPLEMENTATION
     Dosage: UNK, 1X/DAY
  7. CALCIUM WITH VITAMIN D [Concomitant]
     Dosage: UNK

REACTIONS (3)
  - PRURITUS [None]
  - APPLICATION SITE ERYTHEMA [None]
  - DRUG EFFECT DECREASED [None]
